FAERS Safety Report 7421491-8 (Version None)
Quarter: 2011Q2

REPORT INFORMATION
  Report Type: 
  Country: None (occurrence: None)
  Receive Date: 20110418
  Receipt Date: 20110404
  Transmission Date: 20111010
  Serious: Yes (Hospitalization)
  Sender: FDA-Public Use
  Company Number: US-CELGENEUS-163-21880-11040292

PATIENT
  Sex: Male

DRUGS (2)
  1. DEXAMETHASONE [Suspect]
  2. REVLIMID [Suspect]
     Indication: MULTIPLE MYELOMA
     Dosage: 10 MILLIGRAM
     Route: 048
     Dates: start: 20100607

REACTIONS (2)
  - BENIGN PROSTATIC HYPERPLASIA [None]
  - DIARRHOEA [None]
